FAERS Safety Report 8161888-4 (Version None)
Quarter: 2012Q1

REPORT INFORMATION
  Report Type: 
  Country: None (occurrence: None)
  Receive Date: 20120224
  Receipt Date: 20111101
  Transmission Date: 20120608
  Serious: No
  Sender: FDA-Public Use
  Company Number: US-BRISTOL-MYERS SQUIBB COMPANY-16208258

PATIENT
  Sex: Male

DRUGS (3)
  1. NAPROXEN (ALEVE) [Concomitant]
  2. CIPRO [Concomitant]
  3. GLUCOPHAGE [Suspect]

REACTIONS (5)
  - CHEST DISCOMFORT [None]
  - CARDIAC FLUTTER [None]
  - DIZZINESS [None]
  - SYNCOPE [None]
  - EXTRASYSTOLES [None]
